FAERS Safety Report 8276979-7 (Version None)
Quarter: 2012Q2

REPORT INFORMATION
  Report Type: 
  Country: None (occurrence: None)
  Receive Date: 20120412
  Receipt Date: 20120329
  Transmission Date: 20120825
  Serious: Yes (Hospitalization)
  Sender: FDA-Public Use
  Company Number: GB-CELGENEUS-167-21880-11121481

PATIENT
  Age: 76 Year
  Sex: Male
  Weight: 70.8 kg

DRUGS (10)
  1. IRON INFUSION [Concomitant]
     Indication: IRON DEFICIENCY
     Route: 065
  2. REVLIMID [Suspect]
     Route: 048
     Dates: end: 20111207
  3. DEXAMETHASONE 4MG TAB [Suspect]
     Route: 048
     Dates: start: 20111022
  4. ARACHIS OLLI ENEMA [Concomitant]
     Route: 065
     Dates: start: 20111208
  5. REVLIMID [Suspect]
     Route: 048
     Dates: start: 20111022
  6. CYCLOPHOSPHAMIDE [Suspect]
     Route: 048
     Dates: end: 20111126
  7. DIFFLAM [Concomitant]
     Dosage: 45 MILLILITER
     Route: 002
     Dates: start: 20111208
  8. DEXAMETHASONE 4MG TAB [Suspect]
     Route: 048
     Dates: end: 20111206
  9. CYCLOPHOSPHAMIDE [Suspect]
     Route: 048
     Dates: start: 20111022
  10. ALBUTEROL [Concomitant]
     Route: 050
     Dates: start: 20111208

REACTIONS (36)
  - ATRIAL FIBRILLATION [None]
  - NEUTROPHIL COUNT DECREASED [None]
  - MYELOCYTE COUNT INCREASED [None]
  - PO2 DECREASED [None]
  - RED BLOOD CELL COUNT DECREASED [None]
  - BLOOD ALBUMIN DECREASED [None]
  - ALANINE AMINOTRANSFERASE INCREASED [None]
  - BLOOD CREATININE INCREASED [None]
  - BLOOD SODIUM INCREASED [None]
  - BLOOD BILIRUBIN INCREASED [None]
  - HAEMOGLOBIN DECREASED [None]
  - PROTHROMBIN TIME PROLONGED [None]
  - MELAENA [None]
  - IRON DEFICIENCY [None]
  - CIRCULATORY COLLAPSE [None]
  - SEPSIS [None]
  - ATRIAL FLUTTER [None]
  - WHITE BLOOD CELL COUNT DECREASED [None]
  - PROTEIN TOTAL DECREASED [None]
  - INTERNATIONAL NORMALISED RATIO INCREASED [None]
  - BLOOD UREA INCREASED [None]
  - CONDITION AGGRAVATED [None]
  - PCO2 DECREASED [None]
  - BLOOD GLUCOSE INCREASED [None]
  - SYNCOPE [None]
  - TORSADE DE POINTES [None]
  - BLOOD MAGNESIUM DECREASED [None]
  - CARDIAC ARREST [None]
  - ELECTROLYTE IMBALANCE [None]
  - C-REACTIVE PROTEIN INCREASED [None]
  - HYPOTHERMIA [None]
  - ALTERED STATE OF CONSCIOUSNESS [None]
  - PANCREATITIS [None]
  - PLATELET COUNT DECREASED [None]
  - METAMYELOCYTE COUNT INCREASED [None]
  - BLOOD POTASSIUM DECREASED [None]
